FAERS Safety Report 25791147 (Version 1)
Quarter: 2025Q3

REPORT INFORMATION
  Report Type: Spontaneous
  Country: EU (occurrence: EU)
  Receive Date: 20250911
  Receipt Date: 20250911
  Transmission Date: 20251020
  Serious: Yes (Death, Hospitalization)
  Sender: BAYER HEALTHCARE PHARMACEUTICALS INC.
  Company Number: EU-BAYER-2025A117225

PATIENT
  Sex: Male

DRUGS (4)
  1. NUBEQA [Suspect]
     Active Substance: DAROLUTAMIDE
     Indication: Hormone-refractory prostate cancer
     Dates: start: 202309
  2. CANDESARTAN [Concomitant]
     Active Substance: CANDESARTAN
  3. HYDROCHLOROTHIAZIDE [Concomitant]
     Active Substance: HYDROCHLOROTHIAZIDE
  4. Luteinising hormone [Concomitant]

REACTIONS (4)
  - Metastases to peritoneum [Fatal]
  - Metastases to gastrointestinal tract [Fatal]
  - Asthenia [None]
  - Arthralgia [None]
